FAERS Safety Report 16403262 (Version 1)
Quarter: 2019Q2

REPORT INFORMATION
  Report Type: Spontaneous
  Country: FR (occurrence: FR)
  Receive Date: 20190607
  Receipt Date: 20190607
  Transmission Date: 20190711
  Serious: Yes (Hospitalization)
  Sender: FDA-Public Use
  Company Number: FR-ACCORD-131682

PATIENT
  Age: 69 Year
  Sex: Male
  Weight: 100 kg

DRUGS (11)
  1. GEMCITABINE ACCORD [Suspect]
     Active Substance: GEMCITABINE HYDROCHLORIDE
     Indication: METASTATIC BRONCHIAL CARCINOMA
     Route: 042
     Dates: start: 20181212, end: 20181212
  2. SERESTA [Concomitant]
     Active Substance: OXAZEPAM
     Route: 048
  3. PANTOPRAZOLE MYLAN [Concomitant]
     Active Substance: PANTOPRAZOLE SODIUM
     Route: 048
  4. FLUOXETINE ARROW [Concomitant]
     Active Substance: FLUOXETINE HYDROCHLORIDE
     Route: 048
  5. METHYLPREDNISOLONE MYLAN [Concomitant]
     Active Substance: METHYLPREDNISOLONE
     Route: 042
     Dates: start: 20181212, end: 20181212
  6. TEMERIT [Concomitant]
     Active Substance: NEBIVOLOL
     Route: 048
  7. KEPPRA [Concomitant]
     Active Substance: LEVETIRACETAM
     Route: 048
  8. SOLUPRED [Concomitant]
     Route: 048
  9. ONDANSETRON ACCORD [Concomitant]
     Active Substance: ONDANSETRON
     Indication: PROPHYLAXIS OF NAUSEA AND VOMITING
     Route: 042
     Dates: start: 20181212, end: 20181212
  10. PREGABALIN. [Concomitant]
     Active Substance: PREGABALIN
     Route: 048
  11. ASPIRINE PROTECT [Concomitant]
     Active Substance: ASPIRIN
     Route: 048

REACTIONS (1)
  - Pneumonia [Recovered/Resolved]

NARRATIVE: CASE EVENT DATE: 20181215
